FAERS Safety Report 20538941 (Version 1)
Quarter: 2022Q1

REPORT INFORMATION
  Report Type: Report from Study
  Country: CA (occurrence: CA)
  Receive Date: 20220302
  Receipt Date: 20220302
  Transmission Date: 20220423
  Serious: Yes (Hospitalization, Other)
  Sender: FDA-Public Use
  Company Number: CA-JNJFOC-20210422350

PATIENT
  Age: 47 Year
  Sex: Male
  Weight: 74 kg

DRUGS (2)
  1. STELARA [Suspect]
     Active Substance: USTEKINUMAB
     Indication: Crohn^s disease
     Route: 058
     Dates: start: 20180302
  2. STELARA [Suspect]
     Active Substance: USTEKINUMAB

REACTIONS (12)
  - Intestinal obstruction [Recovering/Resolving]
  - Post procedural complication [Recovering/Resolving]
  - Endocarditis [Not Recovered/Not Resolved]
  - Device related sepsis [Not Recovered/Not Resolved]
  - Escherichia sepsis [Unknown]
  - Enterocutaneous fistula [Unknown]
  - Electrolyte imbalance [Unknown]
  - Malnutrition [Unknown]
  - Hypotension [Unknown]
  - Off label use [Unknown]
  - Product use issue [Unknown]
  - Therapy non-responder [Unknown]

NARRATIVE: CASE EVENT DATE: 20180302
